FAERS Safety Report 4875458-4 (Version None)
Quarter: 2005Q4

REPORT INFORMATION
  Report Type: 
  Country: None (occurrence: None)
  Receive Date: 20051209
  Receipt Date: 20051130
  Transmission Date: 20060501
  Serious: Yes (Other)
  Sender: FDA-Public Use
  Company Number: COV2-2005-00185

PATIENT
  Age: 33 Year
  Sex: Female
  Weight: 57.5 kg

DRUGS (10)
  1. FOSRENOL(LANTHANUM CARBONATE 500MG) FOSRENOL(LANTHANUM CARBONATE) TABL [Suspect]
     Indication: HYPERPHOSPHATAEMIA
     Dosage: 1000 MG, 3X/DAY;TID, ORAL
     Route: 048
     Dates: start: 20050708, end: 20050730
  2. BENAZEPRIL HCL [Concomitant]
  3. CATAPRES [Concomitant]
  4. HYDRALAZINE [Concomitant]
  5. LEVOTHYROXINE SODIUM [Concomitant]
  6. LIPITOR [Concomitant]
  7. METOPROLOL [Concomitant]
  8. NORVASC /DEN/ (AMLODIPINE BESILATE) [Concomitant]
  9. ROCALTROL [Concomitant]
  10. SENSIPAR (ALUMINUM HYDROXIDE, MAGNESIUM HYDROXIDE) [Concomitant]

REACTIONS (3)
  - ABDOMINAL PAIN [None]
  - NAUSEA [None]
  - VOMITING [None]
